FAERS Safety Report 18340636 (Version 1)
Quarter: 2020Q4

REPORT INFORMATION
  Report Type: Spontaneous
  Country: FR (occurrence: FR)
  Receive Date: 20201002
  Receipt Date: 20201002
  Transmission Date: 20210113
  Serious: Yes (Hospitalization)
  Sender: FDA-Public Use
  Company Number: FR-PURDUE-USA-2020-0168809

PATIENT
  Age: 53 Year
  Sex: Female
  Weight: 39 kg

DRUGS (8)
  1. METHADONE [Suspect]
     Active Substance: METHADONE HYDROCHLORIDE
     Indication: CANCER PAIN
     Dosage: 80 MG, DAILY (40 MG, BID)
     Route: 048
     Dates: start: 20200612
  2. MOVENTIG [Suspect]
     Active Substance: NALOXEGOL OXALATE
     Indication: PRODUCT USED FOR UNKNOWN INDICATION
     Dosage: 25 MG, UNK
     Route: 065
  3. LEXOMIL [Suspect]
     Active Substance: BROMAZEPAM
     Indication: ANXIETY
     Dosage: 6 MG, SINGLE (6 MG (ONCE IN TOTAL))
     Route: 048
     Dates: start: 20200616, end: 20200617
  4. TERCIAN                            /00759301/ [Suspect]
     Active Substance: CYAMEMAZINE
     Indication: ANXIETY
     Dosage: 12.5 MG, TID (Q3HR (12.5 MG)
     Route: 048
     Dates: start: 20200616, end: 20200617
  5. MIDAZOLAM. [Suspect]
     Active Substance: MIDAZOLAM
     Indication: PRODUCT USED FOR UNKNOWN INDICATION
     Dosage: UNK
     Route: 065
     Dates: start: 20200617
  6. SUBUTEX [Concomitant]
     Active Substance: BUPRENORPHINE HYDROCHLORIDE
     Indication: PAIN MANAGEMENT
     Dosage: UNK
  7. LYRICA [Suspect]
     Active Substance: PREGABALIN
     Indication: PRODUCT USED FOR UNKNOWN INDICATION
     Dosage: 225 MG, DAILY (75 MG, TID)
     Route: 065
     Dates: start: 20200616, end: 20200617
  8. MORPHINE SULFATE (SIMILAR TO NDA 19-516) [Suspect]
     Active Substance: MORPHINE SULFATE
     Indication: PRODUCT USED FOR UNKNOWN INDICATION
     Dosage: UNK
     Route: 065
     Dates: start: 20200617, end: 20200618

REACTIONS (4)
  - Miosis [Unknown]
  - Hyperthermia [Unknown]
  - Altered state of consciousness [Recovered/Resolved]
  - Urinary retention [Recovered/Resolved]

NARRATIVE: CASE EVENT DATE: 20200617
